FAERS Safety Report 5221674-1 (Version None)
Quarter: 2007Q1

REPORT INFORMATION
  Report Type: 
  Country: None (occurrence: None)
  Receive Date: 20070129
  Receipt Date: 20070117
  Transmission Date: 20070707
  Serious: Yes (Other)
  Sender: FDA-Public Use
  Company Number: PHEH2007US01089

PATIENT

DRUGS (1)
  1. LOTREL [Suspect]
     Route: 048

REACTIONS (1)
  - HYPONATRAEMIA [None]
